FAERS Safety Report 7467035-6 (Version None)
Quarter: 2011Q2

REPORT INFORMATION
  Report Type: 
  Country: None (occurrence: None)
  Receive Date: 20110509
  Receipt Date: 20110504
  Transmission Date: 20111010
  Serious: Yes (Other)
  Sender: FDA-Public Use
  Company Number: AU-ABBOTT-11P-008-0723457-00

PATIENT
  Sex: Female

DRUGS (4)
  1. MESALAMINE [Concomitant]
     Indication: PRODUCT USED FOR UNKNOWN INDICATION
  2. METHOTREXATE [Concomitant]
     Indication: PRODUCT USED FOR UNKNOWN INDICATION
  3. HUMIRA [Suspect]
     Indication: PRODUCT USED FOR UNKNOWN INDICATION
     Dosage: 80MG WEEKLY
     Dates: start: 20101215, end: 20110215
  4. ACTONEL WITH CALCIUM (COPACKAGED) [Concomitant]
     Indication: PRODUCT USED FOR UNKNOWN INDICATION

REACTIONS (3)
  - SKIN FISSURES [None]
  - DERMATITIS [None]
  - APATHY [None]
